FAERS Safety Report 9931865 (Version 2)
Quarter: 2014Q1

REPORT INFORMATION
  Report Type: Report from Study
  Country: AU (occurrence: AU)
  Receive Date: 20140228
  Receipt Date: 20140228
  Transmission Date: 20141002
  Serious: Yes (Death, Hospitalization)
  Sender: FDA-Public Use
  Company Number: AU-ASTELLAS-2014EU000443

PATIENT
  Age: 90 Year
  Sex: Male
  Weight: 48.6 kg

DRUGS (12)
  1. ENZALUTAMIDE [Suspect]
     Indication: PROSTATE CANCER
     Dosage: 160 MG, UID/QD
     Route: 048
     Dates: start: 20131218, end: 20140107
  2. OXYCODONE [Concomitant]
     Indication: PAIN
     Dosage: 5 MG, BID
     Route: 048
     Dates: start: 201310, end: 201312
  3. OXYCODONE [Concomitant]
     Dosage: 5 MG, UID/QD
     Route: 048
     Dates: start: 201312
  4. MERSYNDOL                          /01137701/ [Concomitant]
     Indication: PAIN
     Dosage: UNK, OTHER
     Route: 048
     Dates: start: 201312
  5. ELIGARD [Concomitant]
     Indication: PROSTATE CANCER
     Dosage: 22.5 MG, CYCLIC
     Route: 058
     Dates: start: 201108
  6. RAMIPRIL [Concomitant]
     Indication: HYPERTENSION
     Dosage: 5 MG, UID/QD
     Route: 048
     Dates: start: 201107, end: 20140107
  7. RAMIPRIL [Concomitant]
     Dosage: 2.5 MG, ONCE
     Route: 048
     Dates: start: 20140107
  8. ENDONE [Concomitant]
     Indication: PAIN
     Dosage: 5 MG, OTHER
     Route: 048
     Dates: start: 201312
  9. SOMAC [Concomitant]
     Indication: GASTROOESOPHAGEAL REFLUX DISEASE
     Dosage: 40 MG, UID/QD
     Route: 048
     Dates: end: 20140108
  10. SOMAC [Concomitant]
     Dosage: 40 MG, PRN
     Route: 048
     Dates: start: 20140108
  11. THIAMINE [Concomitant]
     Indication: NUTRITIONAL SUPPLEMENTATION
     Dosage: 200 MG, BID
     Route: 048
     Dates: start: 20140108
  12. MULTIVITAMIN                       /00097801/ [Concomitant]
     Indication: NUTRITIONAL SUPPLEMENTATION
     Dosage: 1 DF, ONCE
     Route: 048
     Dates: start: 20140108

REACTIONS (4)
  - Disease progression [Fatal]
  - Back pain [Unknown]
  - Nausea [Not Recovered/Not Resolved]
  - Decreased appetite [Not Recovered/Not Resolved]
